FAERS Safety Report 13057187 (Version 1)
Quarter: 2016Q4

REPORT INFORMATION
  Report Type: Spontaneous
  Country: PL (occurrence: PL)
  Receive Date: 20161222
  Receipt Date: 20161222
  Transmission Date: 20170207
  Serious: Yes (Life-Threatening)
  Sender: FDA-Public Use
  Company Number: PL-AMGEN-POLSP2016181369

PATIENT
  Age: 13 Year
  Sex: Male
  Weight: 36 kg

DRUGS (3)
  1. ENBREL [Suspect]
     Active Substance: ETANERCEPT
     Indication: PSORIASIS
     Dosage: 25 MG, WEEKLY
     Route: 058
     Dates: start: 20160916
  2. LATICORT [Concomitant]
     Dosage: UNK
     Dates: start: 20161209, end: 20161212
  3. NEOMYCIN [Concomitant]
     Active Substance: NEOMYCIN
     Dosage: UNK
     Dates: start: 20161209, end: 20161212

REACTIONS (4)
  - Swelling face [Recovering/Resolving]
  - Urticaria physical [Recovering/Resolving]
  - Hyperhidrosis [Recovering/Resolving]
  - Erythema [Unknown]

NARRATIVE: CASE EVENT DATE: 20161210
